FAERS Safety Report 16507270 (Version 1)
Quarter: 2019Q3

REPORT INFORMATION
  Report Type: Spontaneous
  Country: US (occurrence: US)
  Receive Date: 20190520
  Receipt Date: 20190520
  Transmission Date: 20191004
  Serious: Yes (Hospitalization)
  Sender: FDA-Public Use
  Company Number: None

PATIENT
  Age: 57 Year
  Sex: Female
  Weight: 75.1 kg

DRUGS (5)
  1. LYRICA [Concomitant]
     Active Substance: PREGABALIN
  2. APIXABAN [Suspect]
     Active Substance: APIXABAN
     Route: 048
     Dates: start: 20180823, end: 20190513
  3. LETROZOLE. [Concomitant]
     Active Substance: LETROZOLE
  4. SYNTHROID [Concomitant]
     Active Substance: LEVOTHYROXINE SODIUM
  5. DECADRON [Concomitant]
     Active Substance: DEXAMETHASONE

REACTIONS (5)
  - Decreased appetite [None]
  - Unresponsive to stimuli [None]
  - Cerebrovascular accident [None]
  - Mouth haemorrhage [None]
  - Toxic encephalopathy [None]

NARRATIVE: CASE EVENT DATE: 20190513
